FAERS Safety Report 18766010 (Version 1)
Quarter: 2021Q1

REPORT INFORMATION
  Report Type: Spontaneous
  Country: US (occurrence: US)
  Receive Date: 20210121
  Receipt Date: 20210121
  Transmission Date: 20210419
  Serious: Yes (Other)
  Sender: FDA-Public Use
  Company Number: US-SUN PHARMACEUTICAL INDUSTRIES LTD-2021R1-275938

PATIENT
  Age: 36 Year
  Sex: Male

DRUGS (1)
  1. ASPIRIN. [Suspect]
     Active Substance: ASPIRIN
     Indication: HEADACHE
     Dosage: 20 DOSAGE FORM(325 MG EACH)
     Route: 065

REACTIONS (3)
  - Intentional overdose [Unknown]
  - Hyperthermia [Unknown]
  - Rhabdomyolysis [Unknown]
